FAERS Safety Report 9579589 (Version 1)
Quarter: 2013Q4

REPORT INFORMATION
  Report Type: Spontaneous
  Country: US (occurrence: US)
  Receive Date: 20131001
  Receipt Date: 20131001
  Transmission Date: 20140711
  Serious: No
  Sender: FDA-Public Use
  Company Number: US-AMGEN-USASP2013039716

PATIENT
  Age: 72 Year
  Sex: Male
  Weight: 57.14 kg

DRUGS (1)
  1. PROCRIT [Suspect]
     Indication: MINERAL SUPPLEMENTATION
     Dosage: UNK UNK, QWK
     Route: 023
     Dates: start: 20130523

REACTIONS (1)
  - Inappropriate schedule of drug administration [Recovered/Resolved]
